FAERS Safety Report 8012896-5 (Version None)
Quarter: 2011Q4

REPORT INFORMATION
  Report Type: 
  Country: None (occurrence: None)
  Receive Date: 20111229
  Receipt Date: 20111222
  Transmission Date: 20120403
  Serious: Yes (Death)
  Sender: FDA-Public Use
  Company Number: JP-CELGENEUS-087-50794-11123445

PATIENT
  Sex: Female
  Weight: 44 kg

DRUGS (15)
  1. RIMATIL [Concomitant]
     Route: 065
  2. DORIPENEM MONOHYDRATE [Concomitant]
     Route: 065
     Dates: start: 20111017, end: 20111031
  3. PREDNISOLONE [Concomitant]
     Route: 065
  4. OLMESARTAN MEDOXOMIL [Concomitant]
     Route: 065
  5. ZYVOX [Concomitant]
     Route: 065
     Dates: start: 20110922, end: 20111003
  6. RABEPRAZOLE SODIUM [Concomitant]
     Route: 065
  7. DAI-KENCHU-TO [Concomitant]
     Route: 065
     Dates: start: 20110920, end: 20111003
  8. ZYVOX [Concomitant]
     Route: 065
     Dates: start: 20111017, end: 20111031
  9. FLUCONAZOLE [Concomitant]
     Route: 065
     Dates: start: 20111021, end: 20111103
  10. MAGNESIUM OXIDE [Concomitant]
     Route: 065
  11. MAINHEART [Concomitant]
     Route: 065
  12. VIDAZA [Suspect]
     Dosage: 75 MILLIGRAM/SQ. METER
     Route: 041
     Dates: start: 20110912, end: 20110918
  13. NIFEDIPINE [Concomitant]
     Route: 065
  14. MEROPENEM [Concomitant]
     Route: 065
     Dates: start: 20110920, end: 20111003
  15. GRAN [Concomitant]
     Route: 065
     Dates: start: 20110920, end: 20111103

REACTIONS (3)
  - PLATELET COUNT DECREASED [None]
  - SEPSIS [None]
  - PNEUMONIA [None]
